FAERS Safety Report 18047664 (Version 1)
Quarter: 2020Q3

REPORT INFORMATION
  Report Type: Spontaneous
  Country: US (occurrence: US)
  Receive Date: 20200720
  Receipt Date: 20200720
  Transmission Date: 20201103
  Serious: Yes (Hospitalization)
  Sender: FDA-Public Use
  Company Number: None

PATIENT
  Age: 96 Year
  Sex: Male
  Weight: 64 kg

DRUGS (1)
  1. TRAZODONE (TRAZODONE HCL 50MG TAB) [Suspect]
     Active Substance: TRAZODONE HYDROCHLORIDE
     Indication: INSOMNIA
     Dosage: ?          OTHER DOSE:25?50MG;?
     Route: 048
     Dates: start: 20200526, end: 20200602

REACTIONS (3)
  - Lactic acidosis [None]
  - Hypoxia [None]
  - Cardiac failure congestive [None]

NARRATIVE: CASE EVENT DATE: 20200602
